FAERS Safety Report 12657065 (Version 1)
Quarter: 2016Q3

REPORT INFORMATION
  Report Type: Spontaneous
  Country: BR (occurrence: BR)
  Receive Date: 20160816
  Receipt Date: 20160816
  Transmission Date: 20161109
  Serious: Yes (Death, Hospitalization, Other)
  Sender: FDA-Public Use
  Company Number: BR-GILEAD-2016-0228679

PATIENT
  Age: 76 Year
  Sex: Female
  Weight: 57 kg

DRUGS (8)
  1. FORMOTEROL [Concomitant]
     Active Substance: FORMOTEROL
  2. VITAMIN D3 [Concomitant]
     Active Substance: CHOLECALCIFEROL
  3. OLYSIO [Suspect]
     Active Substance: SIMEPREVIR
     Indication: HEPATITIS C
     Dosage: 150 MG, QD
     Route: 048
     Dates: start: 20160624, end: 20160717
  4. LOSARTAN. [Concomitant]
     Active Substance: LOSARTAN
  5. HIDROCLOROTIAZIDA [Concomitant]
     Active Substance: HYDROCHLOROTHIAZIDE
  6. SOVALDI [Suspect]
     Active Substance: SOFOSBUVIR
     Indication: HEPATITIS C
     Dosage: 400 MG, QD
     Route: 048
     Dates: start: 20160624, end: 20160717
  7. DIOSMINA HESPERIDINA [Concomitant]
  8. ACEBROFILINA [Concomitant]

REACTIONS (13)
  - Interstitial lung disease [Fatal]
  - Shock [Fatal]
  - Confusional state [Unknown]
  - Constipation [Unknown]
  - Haemoglobin decreased [Unknown]
  - Thrombocytopenia [Unknown]
  - Haemodynamic instability [Fatal]
  - Somnolence [Unknown]
  - Lung disorder [Unknown]
  - Hypoventilation [Unknown]
  - Vomiting [Unknown]
  - Hyponatraemia [Unknown]
  - Respiratory disorder [Unknown]

NARRATIVE: CASE EVENT DATE: 201607
